FAERS Safety Report 19478277 (Version 1)
Quarter: 2021Q2

REPORT INFORMATION
  Report Type: Spontaneous
  Country: US (occurrence: US)
  Receive Date: 20210630
  Receipt Date: 20210630
  Transmission Date: 20210717
  Serious: No
  Sender: FDA-Public Use
  Company Number: US-SA-2021SA213520

PATIENT
  Sex: Female

DRUGS (1)
  1. AUBAGIO [Suspect]
     Active Substance: TERIFLUNOMIDE
     Indication: ANXIETY DISORDER
     Dosage: 7 MG
     Route: 058
     Dates: start: 20210325

REACTIONS (3)
  - Electric shock [Unknown]
  - Drug hypersensitivity [Unknown]
  - Urticaria [Unknown]
